FAERS Safety Report 15568683 (Version 1)
Quarter: 2018Q4

REPORT INFORMATION
  Report Type: Spontaneous
  Country: CZ (occurrence: CZ)
  Receive Date: 20181031
  Receipt Date: 20181031
  Transmission Date: 20190205
  Serious: Yes (Death, Life-Threatening, Hospitalization, Disabling, Other)
  Sender: FDA-Public Use
  Company Number: CZ-ABBVIE-18K-217-2538517-00

PATIENT
  Age: 70 Year
  Sex: Female

DRUGS (1)
  1. VENCLYXTO [Suspect]
     Active Substance: VENETOCLAX
     Indication: CHRONIC LYMPHOCYTIC LEUKAEMIA
     Route: 048
     Dates: start: 20181019, end: 20181021

REACTIONS (11)
  - Sinusitis [Unknown]
  - Presyncope [Recovered/Resolved]
  - Hyponatraemia [Fatal]
  - Respiratory failure [Fatal]
  - Atrial tachycardia [Recovered/Resolved]
  - Subdural haematoma [Fatal]
  - Metabolic acidosis [Fatal]
  - Coma [Fatal]
  - Acute kidney injury [Fatal]
  - Generalised oedema [Fatal]
  - Hepatic lesion [Fatal]

NARRATIVE: CASE EVENT DATE: 20181020
